FAERS Safety Report 22130531 (Version 1)
Quarter: 2023Q1

REPORT INFORMATION
  Report Type: Other
  Country: AE (occurrence: None)
  Receive Date: 20230323
  Receipt Date: 20230323
  Transmission Date: 20230418
  Serious: Yes (Other)
  Sender: FDA-Public Use
  Company Number: AE-ROCHE-3311437

PATIENT
  Sex: Female

DRUGS (2)
  1. TOCILIZUMAB [Suspect]
     Active Substance: TOCILIZUMAB
     Indication: COVID-19
     Dosage: FIRST DOSE, TWO DOSES OF 400 MG OF TOCILIZUMAB INTRAVENOUSLY 24 HOURS APART.
     Route: 042
  2. TOCILIZUMAB [Suspect]
     Active Substance: TOCILIZUMAB
     Indication: Cytokine release syndrome
     Dosage: GIVEN AFTER 24 HOURS OF FIRST DOSE.
     Route: 042

REACTIONS (11)
  - Premature separation of placenta [Unknown]
  - Respiratory tract infection fungal [Unknown]
  - Maternal exposure during pregnancy [Unknown]
  - Off label use [Unknown]
  - Premature delivery [Unknown]
  - Pre-eclampsia [Unknown]
  - COVID-19 [Unknown]
  - Axonal neuropathy [Unknown]
  - Prolonged labour [Unknown]
  - Pseudomonas test positive [Unknown]
  - Bacterial test positive [Unknown]
